FAERS Safety Report 17986631 (Version 1)
Quarter: 2020Q3

REPORT INFORMATION
  Report Type: Spontaneous
  Country: PL (occurrence: PL)
  Receive Date: 20200706
  Receipt Date: 20200706
  Transmission Date: 20201103
  Serious: Yes (Other)
  Sender: FDA-Public Use
  Company Number: NVSC2020PL190305

PATIENT
  Age: 37 Year
  Sex: Female

DRUGS (3)
  1. RYDAPT [Suspect]
     Active Substance: MIDOSTAURIN
     Dosage: 25 MG, BID (2X25 MG)
     Route: 065
  2. RYDAPT [Suspect]
     Active Substance: MIDOSTAURIN
     Indication: PRODUCT USED FOR UNKNOWN INDICATION
     Dosage: 50 MG, BID (2X50MG)
     Route: 065
     Dates: start: 20180228
  3. RYDAPT [Suspect]
     Active Substance: MIDOSTAURIN
     Dosage: 25 MG, QD (1X25 MG)
     Route: 065

REACTIONS (8)
  - Acute myeloid leukaemia recurrent [Unknown]
  - Dermatitis exfoliative [Unknown]
  - Acute graft versus host disease in skin [Unknown]
  - Sinus tachycardia [Unknown]
  - Cardiac disorder [Unknown]
  - Gamma-glutamyltransferase increased [Unknown]
  - Oral mucosa erosion [Unknown]
  - Rash papular [Unknown]

NARRATIVE: CASE EVENT DATE: 201907
